FAERS Safety Report 20935070 (Version 1)
Quarter: 2022Q2

REPORT INFORMATION
  Report Type: Spontaneous
  Country: CN (occurrence: None)
  Receive Date: 20220608
  Receipt Date: 20220608
  Transmission Date: 20220720
  Serious: Yes (Hospitalization, Disabling)
  Sender: FDA-Public Use
  Company Number: CN-ROCHE-3108398

PATIENT
  Sex: Female
  Weight: 63.5 kg

DRUGS (3)
  1. AVASTIN [Suspect]
     Active Substance: BEVACIZUMAB
     Indication: Pancreatic carcinoma
     Route: 042
     Dates: start: 20220518, end: 20220518
  2. PACLITAXEL [Suspect]
     Active Substance: PACLITAXEL
     Indication: Pancreatic carcinoma
     Route: 041
     Dates: start: 20220518, end: 20220518
  3. CISPLATIN [Suspect]
     Active Substance: CISPLATIN
     Indication: Pancreatic carcinoma
     Route: 041
     Dates: start: 20220518, end: 20220519

REACTIONS (4)
  - Myelosuppression [Recovering/Resolving]
  - Off label use [Unknown]
  - Nausea [Unknown]
  - Vomiting [Unknown]

NARRATIVE: CASE EVENT DATE: 20220524
